FAERS Safety Report 10934098 (Version 2)
Quarter: 2015Q2

REPORT INFORMATION
  Report Type: Spontaneous
  Country: US (occurrence: US)
  Receive Date: 20150320
  Receipt Date: 20150526
  Transmission Date: 20150821
  Serious: No
  Sender: FDA-Public Use
  Company Number: US-JNJFOC-20131215112

PATIENT

DRUGS (1)
  1. RISPERDAL [Suspect]
     Active Substance: RISPERIDONE
     Indication: AGGRESSION
     Dosage: 0.5 MG TO 2.5 MG/DAY
     Route: 048

REACTIONS (11)
  - Initial insomnia [Unknown]
  - Rhinorrhoea [Unknown]
  - Cough [Unknown]
  - Increased appetite [Unknown]
  - Abdominal discomfort [Unknown]
  - Blood prolactin increased [Unknown]
  - Diarrhoea [Unknown]
  - Sedation [Unknown]
  - Decreased appetite [Unknown]
  - Vomiting [Unknown]
  - Headache [Unknown]
